FAERS Safety Report 10079651 (Version 1)
Quarter: 2014Q2

REPORT INFORMATION
  Report Type: Spontaneous
  Country: US (occurrence: None)
  Receive Date: 20140414
  Receipt Date: 20140414
  Transmission Date: 20141212
  Serious: No
  Sender: FDA-Public Use
  Company Number: None

PATIENT
  Age: 60 Year
  Sex: Female
  Weight: 52.16 kg

DRUGS (2)
  1. PERIDEX [Suspect]
     Indication: GINGIVAL OPERATION
     Dates: start: 20140113, end: 20140126
  2. PERIDEX [Suspect]
     Indication: POSTOPERATIVE CARE
     Dates: start: 20140113, end: 20140126

REACTIONS (3)
  - Dysgeusia [None]
  - Glossodynia [None]
  - Physical product label issue [None]
